FAERS Safety Report 7757613-9 (Version None)
Quarter: 2011Q3

REPORT INFORMATION
  Report Type: 
  Country: None (occurrence: None)
  Receive Date: 20110916
  Receipt Date: 20110914
  Transmission Date: 20111222
  Serious: Yes (Other)
  Sender: FDA-Public Use
  Company Number: CA-PFIZER INC-2011217059

PATIENT
  Sex: Female

DRUGS (1)
  1. VARENICLINE TARTRATE [Suspect]
     Indication: SMOKING CESSATION THERAPY
     Dosage: UNK
     Dates: start: 20110812

REACTIONS (7)
  - VOMITING [None]
  - INSOMNIA [None]
  - PHARYNGITIS [None]
  - ABNORMAL DREAMS [None]
  - FATIGUE [None]
  - NAUSEA [None]
  - DECREASED APPETITE [None]
